FAERS Safety Report 4331255-X (Version None)
Quarter: 2004Q1

REPORT INFORMATION
  Report Type: 
  Country: None (occurrence: None)
  Receive Date: 20040329
  Receipt Date: 20040317
  Transmission Date: 20041129
  Serious: Yes (Hospitalization, Other)
  Sender: FDA-Public Use
  Company Number: USA-2004-0013726

PATIENT
  Age: 54 Year
  Sex: Female

DRUGS (2)
  1. OXYCONTIN [Suspect]
     Indication: PAIN
     Dosage: 20 MG, Q12H, ORAL
     Route: 048
  2. PREDNISONE [Concomitant]

REACTIONS (3)
  - GASTROENTERITIS [None]
  - RESPIRATORY DISORDER [None]
  - SEDATION [None]
